FAERS Safety Report 8856453 (Version 3)
Quarter: 2013Q1

REPORT INFORMATION
  Report Type: Spontaneous
  Country: FR (occurrence: None)
  Receive Date: 20121018
  Receipt Date: 20121130
  Transmission Date: 20140127
  Serious: Yes (Hospitalization)
  Sender: FDA-Public Use
  Company Number: ACO_32323_2012

PATIENT
  Age: 62 Year
  Sex: Male

DRUGS (5)
  1. FAMPRIDINE [Suspect]
     Indication: MULTIPLE SCLEROSIS
     Route: 048
     Dates: start: 20120709
  2. PROZAC (FLUOXETINE HYDROCHLORIDE) [Concomitant]
  3. LIORESAL (BACLOFEN) [Concomitant]
  4. VALIUM (DIAZEPAM) [Concomitant]
  5. CERIS (TROSPIUM CHLORIDE) [Concomitant]

REACTIONS (4)
  - Fall [None]
  - Venous injury [None]
  - Tendon injury [None]
  - Joint injury [None]
